FAERS Safety Report 10050845 (Version 1)
Quarter: 2014Q2

REPORT INFORMATION
  Report Type: Spontaneous
  Country: US (occurrence: US)
  Receive Date: 20140401
  Receipt Date: 20140401
  Transmission Date: 20141212
  Serious: No
  Sender: FDA-Public Use
  Company Number: US-ASTRAZENECA-2014SE07650

PATIENT
  Sex: Female

DRUGS (2)
  1. NEXIUM [Suspect]
     Route: 048
  2. PRILOSEC [Suspect]
     Dosage: UNKNOWN DAILY
     Route: 048

REACTIONS (3)
  - Malaise [Not Recovered/Not Resolved]
  - Intentional product misuse [Recovered/Resolved]
  - Drug ineffective [Not Recovered/Not Resolved]
